FAERS Safety Report 9813748 (Version 1)
Quarter: 2014Q1

REPORT INFORMATION
  Report Type: Report from Study
  Country: TH (occurrence: TH)
  Receive Date: 20140113
  Receipt Date: 20140113
  Transmission Date: 20141002
  Serious: Yes (Other)
  Sender: FDA-Public Use
  Company Number: TH-ABBVIE-14P-155-1188204-00

PATIENT
  Sex: Female

DRUGS (2)
  1. RITONAVIR [Suspect]
     Indication: HIV INFECTION
     Route: 048
  2. INDINAVIR [Concomitant]
     Indication: HIV INFECTION
     Dosage: 400-600 MG
     Route: 048

REACTIONS (2)
  - Premature labour [Unknown]
  - Premature delivery [Unknown]
